FAERS Safety Report 4474092-8 (Version None)
Quarter: 2004Q4

REPORT INFORMATION
  Report Type: 
  Country: None (occurrence: None)
  Receive Date: 20041008
  Receipt Date: 20041004
  Transmission Date: 20050328
  Serious: Yes (Death)
  Sender: FDA-Public Use
  Company Number: 403425410/PHRM2004 FR02851

PATIENT
  Age: 72 Year
  Sex: Male
  Weight: 82 kg

DRUGS (6)
  1. AK-FLUOR, 10%, AKORN [Suspect]
     Indication: ANGIOGRAM RETINA
     Dosage: 5 L, ONCE/SINGLE, IV
     Route: 042
     Dates: start: 20040913
  2. TIMOPTIC [Concomitant]
  3. NEOSYNEPHRYNE [Concomitant]
  4. MYDRIATICUM [Concomitant]
  5. ATHYMIL [Concomitant]
  6. OGAST [Concomitant]

REACTIONS (6)
  - CARDIO-RESPIRATORY ARREST [None]
  - LOSS OF CONSCIOUSNESS [None]
  - MALAISE [None]
  - MYOCARDIAL INFARCTION [None]
  - SHOCK [None]
  - VENTRICULAR FIBRILLATION [None]
